FAERS Safety Report 4393562-4 (Version None)
Quarter: 2004Q3

REPORT INFORMATION
  Report Type: 
  Country: None (occurrence: None)
  Receive Date: 20040701
  Receipt Date: 20040618
  Transmission Date: 20050211
  Serious: Yes (Hospitalization)
  Sender: FDA-Public Use
  Company Number: SI-JNJFOC-20040604712

PATIENT
  Age: 71 Year
  Sex: Female
  Weight: 70 kg

DRUGS (4)
  1. TOPAMAX [Suspect]
     Indication: EPILEPSY
     Dosage: 100 MG, 2 IN 1 DAY, ORAL
     Route: 048
     Dates: start: 20040323, end: 20040611
  2. TEGRETOL [Concomitant]
  3. LESCOL (TABLETS) FLUVASTATIN SODIUM) [Concomitant]
  4. APAURIN (DIAZEPAM) [Concomitant]

REACTIONS (1)
  - STATUS EPILEPTICUS [None]
